FAERS Safety Report 7957016-8 (Version None)
Quarter: 2011Q4

REPORT INFORMATION
  Report Type: 
  Country: None (occurrence: None)
  Receive Date: 20111205
  Receipt Date: 20111205
  Transmission Date: 20120403
  Serious: Yes (Other)
  Sender: FDA-Public Use
  Company Number: None

PATIENT
  Age: 59 Year
  Sex: Male
  Weight: 72.574 kg

DRUGS (1)
  1. SEROQUEL [Suspect]

REACTIONS (7)
  - JUDGEMENT IMPAIRED [None]
  - SPEECH DISORDER [None]
  - AMNESIA [None]
  - DECREASED APPETITE [None]
  - LOSS OF CONSCIOUSNESS [None]
  - MUSCULOSKELETAL DISORDER [None]
  - CONVULSION [None]
